FAERS Safety Report 5842268-0 (Version None)
Quarter: 2008Q3

REPORT INFORMATION
  Report Type: 
  Country: None (occurrence: None)
  Receive Date: 20080731
  Receipt Date: 20080625
  Transmission Date: 20090109
  Serious: No
  Sender: FDA-Public Use
  Company Number: US200806005947

PATIENT
  Sex: Female

DRUGS (5)
  1. BYETTA [Suspect]
     Indication: TYPE 2 DIABETES MELLITUS
     Dosage: 10 UG, 2/D, SUBCUTANEOUS
     Route: 058
     Dates: start: 20080501
  2. GLUCOPHAGE [Concomitant]
  3. GLYBURIDE [Concomitant]
  4. TEGRETOL [Concomitant]
  5. THYROID TAB [Concomitant]

REACTIONS (2)
  - DRY SKIN [None]
  - RASH PRURITIC [None]
